FAERS Safety Report 22346215 (Version 3)
Quarter: 2025Q2

REPORT INFORMATION
  Report Type: Spontaneous
  Country: US (occurrence: US)
  Receive Date: 20230519
  Receipt Date: 20250529
  Transmission Date: 20250717
  Serious: Yes (Other)
  Sender: BLUEPRINT MEDICINES
  Company Number: US-drreddys-LIT/USA/22/0152432

PATIENT
  Age: 54 Year
  Sex: Male

DRUGS (10)
  1. AYVAKIT [Suspect]
     Active Substance: AVAPRITINIB
     Indication: Gastrointestinal stromal tumour
     Route: 065
  2. QINLOCK [Suspect]
     Active Substance: RIPRETINIB
     Indication: Gastrointestinal stromal tumour
     Route: 065
  3. PAZOPANIB [Suspect]
     Active Substance: PAZOPANIB
     Indication: Gastrointestinal stromal tumour
     Route: 065
  4. NILOTINIB [Suspect]
     Active Substance: NILOTINIB
     Indication: Gastrointestinal stromal tumour
     Route: 065
  5. CABOZANTINIB [Suspect]
     Active Substance: CABOZANTINIB
     Indication: Gastrointestinal stromal tumour
     Route: 065
  6. BINIMETINIB [Suspect]
     Active Substance: BINIMETINIB
     Indication: Gastrointestinal stromal tumour
     Route: 065
  7. IMATINIB MESYLATE [Suspect]
     Active Substance: IMATINIB MESYLATE
     Indication: Gastrointestinal stromal tumour
     Route: 065
  8. REGORAFENIB [Suspect]
     Active Substance: REGORAFENIB
     Indication: Gastrointestinal stromal tumour
     Route: 065
  9. SUNITINIB [Suspect]
     Active Substance: SUNITINIB
     Indication: Gastrointestinal stromal tumour
     Route: 065
  10. SIROLIMUS [Concomitant]
     Active Substance: SIROLIMUS
     Indication: Product used for unknown indication
     Route: 065

REACTIONS (6)
  - Cardiotoxicity [Unknown]
  - Hypersensitivity [Unknown]
  - Disease progression [Unknown]
  - Therapy partial responder [Unknown]
  - Multiple-drug resistance [Unknown]
  - Drug resistance [Unknown]
